FAERS Safety Report 20952183 (Version 10)
Quarter: 2024Q1

REPORT INFORMATION
  Report Type: Spontaneous
  Country: US (occurrence: US)
  Receive Date: 20220613
  Receipt Date: 20240108
  Transmission Date: 20240410
  Serious: No
  Sender: FDA-Public Use
  Company Number: US-PFIZER INC-202200824783

PATIENT
  Age: 70 Year
  Sex: Female
  Weight: 54.43 kg

DRUGS (3)
  1. IBRANCE [Suspect]
     Active Substance: PALBOCICLIB
     Indication: Breast cancer stage IV
     Dosage: 125 MG, CYCLIC
     Dates: start: 202204, end: 202207
  2. IBRANCE [Suspect]
     Active Substance: PALBOCICLIB
     Dosage: 100 MG, CYCLIC (1 TAB A DAY FOR 3 WEEKS AND 1 WEEK OFF)
     Dates: start: 202208
  3. ANASTROZOLE [Concomitant]
     Active Substance: ANASTROZOLE
     Dosage: 1 MG
     Dates: start: 20230423

REACTIONS (4)
  - Full blood count abnormal [Recovering/Resolving]
  - Emotional disorder [Recovered/Resolved]
  - Fear [Recovered/Resolved]
  - Nutritional condition abnormal [Recovered/Resolved]

NARRATIVE: CASE EVENT DATE: 20220423
